FAERS Safety Report 15533436 (Version 2)
Quarter: 2018Q4

REPORT INFORMATION
  Report Type: Spontaneous
  Country: US (occurrence: US)
  Receive Date: 20181019
  Receipt Date: 20181029
  Transmission Date: 20190205
  Serious: No
  Sender: FDA-Public Use
  Company Number: US-BEH-2018095854

PATIENT
  Age: 55 Year
  Sex: Female

DRUGS (1)
  1. HIZENTRA [Suspect]
     Active Substance: HUMAN IMMUNOGLOBULIN G
     Indication: IMMUNODEFICIENCY COMMON VARIABLE
     Dosage: 10 G, QW
     Route: 058
     Dates: start: 20180830, end: 20181012

REACTIONS (10)
  - Feeling abnormal [Unknown]
  - Pruritus [Unknown]
  - Pruritus [Unknown]
  - Tongue disorder [Unknown]
  - Cough [Unknown]
  - Chest discomfort [Unknown]
  - Chest discomfort [Unknown]
  - Cough [Unknown]
  - Tongue disorder [Unknown]
  - Feeling abnormal [Unknown]

NARRATIVE: CASE EVENT DATE: 20181005
